FAERS Safety Report 10574723 (Version 1)
Quarter: 2014Q4

REPORT INFORMATION
  Report Type: Spontaneous
  Country: US (occurrence: US)
  Receive Date: 20141110
  Receipt Date: 20141110
  Transmission Date: 20150529
  Serious: Yes (Death)
  Sender: FDA-Public Use
  Company Number: US-PFIZER INC-2014307569

PATIENT
  Age: 79 Year
  Sex: Male

DRUGS (2)
  1. XALKORI [Suspect]
     Active Substance: CRIZOTINIB
     Indication: LUNG NEOPLASM MALIGNANT
  2. XALKORI [Suspect]
     Active Substance: CRIZOTINIB
     Indication: BRONCHIAL CARCINOMA
     Dosage: 250 MG, 2X/DAY
     Route: 048
     Dates: start: 201409

REACTIONS (1)
  - Death [Fatal]
